FAERS Safety Report 17816911 (Version 1)
Quarter: 2020Q2

REPORT INFORMATION
  Report Type: Spontaneous
  Country: US (occurrence: US)
  Receive Date: 20200522
  Receipt Date: 20200522
  Transmission Date: 20200714
  Serious: No
  Sender: FDA-Public Use
  Company Number: US-FDC LIMITED-2019RIS00381

PATIENT
  Sex: Female

DRUGS (4)
  1. LATANOPROST EYE DROPS (VALIANT BAUSCH) [Suspect]
     Active Substance: LATANOPROST
     Dosage: UNK
     Dates: start: 201907
  2. LOSARTAN POTASSIUM (CITRON) [Suspect]
     Active Substance: LOSARTAN POTASSIUM
     Indication: HYPERTENSION
     Dosage: 50 MG, 1X/DAY
     Dates: start: 201906
  3. TIMOLOL MALEATE. [Suspect]
     Active Substance: TIMOLOL MALEATE
     Indication: INTRAOCULAR PRESSURE INCREASED
     Dosage: UNK
     Dates: end: 201907
  4. TIMOLOL MALEATE. [Suspect]
     Active Substance: TIMOLOL MALEATE
     Dosage: UNK
     Dates: start: 20190710

REACTIONS (7)
  - Hypertension [Not Recovered/Not Resolved]
  - Dry eye [Unknown]
  - Electrocardiogram abnormal [Unknown]
  - Eye pruritus [Unknown]
  - Headache [Unknown]
  - Eye irritation [Unknown]
  - Joint swelling [Unknown]

NARRATIVE: CASE EVENT DATE: 201907
